FAERS Safety Report 5811061-7 (Version None)
Quarter: 2008Q3

REPORT INFORMATION
  Report Type: 
  Country: None (occurrence: None)
  Receive Date: 20080716
  Receipt Date: 20080618
  Transmission Date: 20090109
  Serious: Yes (Other)
  Sender: FDA-Public Use
  Company Number: CA-JNJFOC-20080604999

PATIENT
  Sex: Male
  Weight: 57.5 kg

DRUGS (6)
  1. REMICADE [Suspect]
     Dosage: INFUSION #9
     Route: 042
  2. REMICADE [Suspect]
     Indication: ANKYLOSING SPONDYLITIS
     Dosage: INFUSIONS 1-9, DATES UNSPECIFIED
     Route: 042
  3. TYLENOL [Concomitant]
  4. TYLENOL [Concomitant]
     Indication: PREMEDICATION
  5. ADVIL [Concomitant]
  6. BENADRYL [Concomitant]
     Indication: PREMEDICATION
     Route: 048

REACTIONS (3)
  - HYPERAEMIA [None]
  - INFUSION RELATED REACTION [None]
  - TACHYCARDIA [None]
